FAERS Safety Report 24558773 (Version 6)
Quarter: 2025Q4

REPORT INFORMATION
  Report Type: Spontaneous
  Country: SG (occurrence: SG)
  Receive Date: 20241029
  Receipt Date: 20251217
  Transmission Date: 20260118
  Serious: Yes (Hospitalization)
  Sender: SANDOZ
  Company Number: SG-002147023-NVSC2024SG082027

PATIENT
  Age: 38 Year
  Sex: Female
  Weight: 106.5 kg

DRUGS (83)
  1. CYCLOPHOSPHAMIDE [Suspect]
     Active Substance: CYCLOPHOSPHAMIDE
     Indication: Follicular lymphoma
     Dosage: 250 MG/M2
     Route: 042
     Dates: start: 20240301, end: 20240303
  2. FLUDARABINE [Suspect]
     Active Substance: FLUDARABINE PHOSPHATE
     Dosage: 25 MG/M2 (SOLUTION FOR INFUSION)
     Route: 040
     Dates: start: 20240301
  3. FLUDARABINE [Suspect]
     Active Substance: FLUDARABINE PHOSPHATE
     Indication: Follicular lymphoma
     Dosage: 25 MG/M2 (SOLUTION FOR INFUSION)
     Route: 042
     Dates: start: 20240301, end: 20240303
  4. FLUDARABINE [Suspect]
     Active Substance: FLUDARABINE PHOSPHATE
     Dosage: 25 MG/M2(SOLUTION FOR INFUSION)
     Route: 041
     Dates: start: 20240301
  5. FLUDARABINE [Suspect]
     Active Substance: FLUDARABINE PHOSPHATE
     Dosage: 56 MG (SOLUTION FOR INFUSION)
     Route: 041
     Dates: start: 20240301
  6. FLUDARABINE [Suspect]
     Active Substance: FLUDARABINE PHOSPHATE
     Dosage: 56 MG(SOLUTION FOR INFUSION)
     Route: 041
     Dates: start: 20240301
  7. ACYCLOVIR [Concomitant]
     Active Substance: ACYCLOVIR
     Indication: Product used for unknown indication
     Dosage: UNK (TABLET)
     Route: 065
  8. ACYCLOVIR [Concomitant]
     Active Substance: ACYCLOVIR
     Indication: Antiviral prophylaxis
     Dosage: UNK
     Route: 065
     Dates: start: 20240229
  9. AMOXICILLIN\CLAVULANIC ACID [Concomitant]
     Active Substance: AMOXICILLIN\CLAVULANIC ACID
     Indication: Pyrexia
     Dosage: UNK
     Route: 065
     Dates: start: 20240703, end: 20240704
  10. APIDRA [Concomitant]
     Active Substance: INSULIN GLULISINE
     Indication: Diabetes mellitus
     Dosage: UNK
     Route: 065
     Dates: start: 20250206, end: 20250728
  11. ATORVASTATIN [Concomitant]
     Active Substance: ATORVASTATIN
     Indication: Hyperlipidaemia
     Dosage: UNK, TABLET
     Route: 065
     Dates: start: 20250206, end: 20250728
  12. BETAMETHASONE [Concomitant]
     Active Substance: BETAMETHASONE
     Indication: Dermatitis contact
     Dosage: UNK
     Route: 065
     Dates: start: 20240701, end: 20240708
  13. Boost isocal [Concomitant]
     Indication: Prophylaxis
     Dosage: UNK
     Route: 065
     Dates: start: 20240323, end: 20240518
  14. CHLORPHENIRAMINE MALEATE [Concomitant]
     Active Substance: CHLORPHENIRAMINE MALEATE
     Indication: Pruritus
     Dosage: UNK (TABLET)
     Route: 065
     Dates: start: 20250222, end: 20250227
  15. CHLORPHENIRAMINE MALEATE [Concomitant]
     Active Substance: CHLORPHENIRAMINE MALEATE
     Indication: Allergy prophylaxis
  16. CHLORPHENIRAMINE MALEATE [Concomitant]
     Active Substance: CHLORPHENIRAMINE MALEATE
     Indication: Rhinorrhoea
  17. CHLORPHENIRAMINE MALEATE [Concomitant]
     Active Substance: CHLORPHENIRAMINE MALEATE
     Indication: Prophylaxis
     Dosage: UNK
     Route: 065
     Dates: start: 20240422, end: 20240429
  18. CHLORPHENIRAMINE MALEATE [Concomitant]
     Active Substance: CHLORPHENIRAMINE MALEATE
     Indication: Prophylaxis
     Dosage: UNK
     Route: 065
     Dates: start: 20240607, end: 20240621
  19. CHLORPHENIRAMINE MALEATE [Concomitant]
     Active Substance: CHLORPHENIRAMINE MALEATE
     Indication: Upper respiratory tract infection
     Dosage: UNK
     Route: 065
     Dates: start: 20240403, end: 20240416
  20. CHLORPHENIRAMINE MALEATE [Concomitant]
     Active Substance: CHLORPHENIRAMINE MALEATE
     Dosage: UNK
     Route: 065
     Dates: start: 20240701, end: 20240708
  21. COTRIMOXAZOLE [Concomitant]
     Active Substance: SULFAMETHOXAZOLE\TRIMETHOPRIM
     Indication: Pyrexia
     Dosage: UNK (ADULT TABLET)
     Route: 065
     Dates: start: 20240709, end: 20240715
  22. AMOXICILLIN\CLAVULANATE POTASSIUM [Concomitant]
     Active Substance: AMOXICILLIN\CLAVULANATE POTASSIUM
     Indication: Infection prophylaxis
     Dosage: UNK
     Route: 065
     Dates: start: 20240703, end: 20240704
  23. AMOXICILLIN\CLAVULANATE POTASSIUM [Concomitant]
     Active Substance: AMOXICILLIN\CLAVULANATE POTASSIUM
     Indication: Pyrexia
     Dosage: UNK
     Route: 065
     Dates: start: 20240705, end: 20240710
  24. AMOXICILLIN\CLAVULANATE POTASSIUM [Concomitant]
     Active Substance: AMOXICILLIN\CLAVULANATE POTASSIUM
     Dosage: UNK (625 MG TABLET)
     Route: 065
     Dates: start: 20250222, end: 20250224
  25. AMOXICILLIN\CLAVULANATE POTASSIUM [Concomitant]
     Active Substance: AMOXICILLIN\CLAVULANATE POTASSIUM
     Indication: Upper respiratory tract infection
     Dosage: AMOXICILLIN 500MG, CLAVULANIC ACID 125MG
     Route: 065
     Dates: start: 20240403, end: 20240410
  26. COTRIMOXAZOLE [Concomitant]
     Active Substance: SULFAMETHOXAZOLE\TRIMETHOPRIM
     Indication: Infection prophylaxis
     Dosage: TRIMETHOPRIM 80MG, SULFAMETHOXAZOLE
     Route: 065
     Dates: start: 20240301, end: 20240708
  27. COTRIMOXAZOLE [Concomitant]
     Active Substance: SULFAMETHOXAZOLE\TRIMETHOPRIM
     Indication: Pyrexia
     Dosage: TRIMETHOPRIM 80MG, SULFAMETHOXAZOLE
     Route: 065
     Dates: start: 20240709, end: 20240715
  28. DEQUALINIUM CHLORIDE [Concomitant]
     Active Substance: DEQUALINIUM CHLORIDE
     Indication: Prophylaxis
     Route: 065
  29. DEQUALINIUM CHLORIDE [Concomitant]
     Active Substance: DEQUALINIUM CHLORIDE
     Indication: Prophylaxis
     Route: 065
  30. DEXTROMETHORPHAN [Concomitant]
     Active Substance: DEXTROMETHORPHAN
     Indication: Prophylaxis
     Route: 065
  31. DEXTROMETHORPHAN [Concomitant]
     Active Substance: DEXTROMETHORPHAN
     Indication: Prophylaxis
     Route: 065
  32. DEXTROSE [Concomitant]
     Active Substance: DEXTROSE MONOHYDRATE
     Indication: Diabetes mellitus
     Dosage: 15 G POWDER IN 50ML OF WATER
     Route: 065
     Dates: start: 20240421, end: 20240421
  33. Diben [Concomitant]
     Indication: Prophylaxis
     Dosage: UNK
     Route: 065
     Dates: start: 20240322, end: 20240517
  34. BENZYDAMINE [Concomitant]
     Active Substance: BENZYDAMINE
     Indication: Pain prophylaxis
     Dosage: UNK
     Route: 065
     Dates: start: 20240422, end: 20240429
  35. BENZYDAMINE [Concomitant]
     Active Substance: BENZYDAMINE
     Indication: Upper respiratory tract infection
     Dosage: UNK
     Route: 065
     Dates: start: 20240403, end: 20240416
  36. EMPAGLIFLOZIN [Concomitant]
     Active Substance: EMPAGLIFLOZIN
     Indication: Diabetes mellitus
     Dosage: UNK
     Route: 065
     Dates: start: 20240201, end: 20240422
  37. EMPAGLIFLOZIN [Concomitant]
     Active Substance: EMPAGLIFLOZIN
     Dosage: UNK
     Route: 065
     Dates: start: 20240523, end: 20240715
  38. ESTRADIOL [Concomitant]
     Active Substance: ESTRADIOL
     Indication: Premature menopause
     Dosage: 0.06% GEL
     Route: 065
     Dates: start: 20250203, end: 20250428
  39. FERROUS GLUCONATE [Concomitant]
     Active Substance: FERROUS GLUCONATE
     Indication: Prophylaxis
     Dosage: UNK, COMPOUND CAPSULE (STOP DATE: 14-APR-2025)
     Route: 065
     Dates: start: 20250424
  40. FERROUS GLUCONATE [Concomitant]
     Active Substance: FERROUS GLUCONATE
     Indication: Anaemia prophylaxis
  41. FEXOFENADINE HYDROCHLORIDE [Concomitant]
     Active Substance: FEXOFENADINE HYDROCHLORIDE
     Indication: Prophylaxis
     Dosage: UNK
     Route: 065
     Dates: start: 20240701, end: 20240708
  42. FEXOFENADINE HYDROCHLORIDE [Concomitant]
     Active Substance: FEXOFENADINE HYDROCHLORIDE
     Indication: Pruritus genital
  43. FLUDARABINE [Concomitant]
     Active Substance: FLUDARABINE PHOSPHATE
     Indication: Follicular lymphoma
     Route: 065
  44. GLUCERNA [Concomitant]
     Active Substance: AMINO ACIDS\DEXTROSE\ELECTROLYTES NOS\SOYBEAN OIL\VITAMINS
     Indication: Prophylaxis
     Dosage: UNK
     Route: 065
     Dates: start: 20240422, end: 20240429
  45. GLUCERNA [Concomitant]
     Active Substance: AMINO ACIDS\DEXTROSE\ELECTROLYTES NOS\SOYBEAN OIL\VITAMINS
     Indication: Nutritional supplementation
     Dosage: LIQUID
     Route: 065
     Dates: start: 20240418, end: 20240421
  46. GLYCERIN THYMOL [Concomitant]
     Indication: Oropharyngeal pain
     Dosage: UNK (COMPOUND GARGLE)
     Route: 065
     Dates: start: 20250222, end: 20250227
  47. GLYCERIN THYMOL [Concomitant]
     Indication: Prophylaxis
  48. GLYCERIN THYMOL [Concomitant]
     Indication: Stomatitis
  49. HEPARIN SODIUM [Concomitant]
     Active Substance: HEPARIN SODIUM
     Indication: Catheter management
     Dosage: UNK
     Route: 065
     Dates: start: 20240422, end: 20240422
  50. IMIQUIMOD [Concomitant]
     Active Substance: IMIQUIMOD
     Indication: Pruritus genital
     Dosage: UNK,5 % CREAM (STOP DATE: 28-APR-2025)
     Route: 065
     Dates: start: 20250516
  51. IRON [Concomitant]
     Active Substance: IRON
     Indication: Mineral supplementation
     Dosage: UNK
     Route: 065
     Dates: start: 20240418
  52. LACTULOSE [Concomitant]
     Active Substance: LACTULOSE
     Indication: Constipation prophylaxis
     Dosage: UNK
     Route: 065
     Dates: start: 20231005, end: 20240601
  53. LORATADINE [Concomitant]
     Active Substance: LORATADINE
     Indication: Pruritus
     Dosage: UNK (TABLET)
     Route: 065
     Dates: start: 20250222, end: 20250227
  54. LORATADINE [Concomitant]
     Active Substance: LORATADINE
     Indication: Allergy prophylaxis
  55. LORATADINE [Concomitant]
     Active Substance: LORATADINE
     Indication: Rhinorrhoea
  56. MAGNESIUM [Concomitant]
     Active Substance: MAGNESIUM
     Indication: Hypomagnesaemia
     Dosage: UNK
     Route: 065
     Dates: start: 20240507, end: 20240521
  57. METFORMIN [Concomitant]
     Active Substance: METFORMIN HYDROCHLORIDE
     Indication: Diabetes mellitus
     Dosage: UNK
     Route: 065
     Dates: start: 20230608
  58. METFORMIN HYDROCHLORIDE [Concomitant]
     Active Substance: METFORMIN HYDROCHLORIDE
     Indication: Diabetes mellitus
     Dosage: UNK, TABLET
     Route: 065
     Dates: start: 20230608, end: 20250728
  59. FILGRASTIM [Concomitant]
     Active Substance: FILGRASTIM
     Indication: Neutrophil count decreased
     Dosage: 300MCG/0.5ML, PREFILLED SYRINGE
     Route: 065
     Dates: start: 20240418, end: 20240418
  60. INSULIN ASPART [Concomitant]
     Active Substance: INSULIN ASPART
     Indication: Diabetes mellitus
     Dosage: FLEXPEN
     Route: 065
     Dates: start: 20240201, end: 20240522
  61. INSULIN ASPART [Concomitant]
     Active Substance: INSULIN ASPART
     Dosage: FLEXPEN
     Route: 065
     Dates: start: 20240523, end: 20240718
  62. INSULIN ASPART [Concomitant]
     Active Substance: INSULIN ASPART
     Indication: Diabetes mellitus
     Dosage: UNK
     Route: 065
     Dates: start: 20241017, end: 20250224
  63. OMEPRAZOLE [Concomitant]
     Active Substance: OMEPRAZOLE
     Indication: Gastrointestinal disorder prophylaxis
     Dosage: UNK
     Route: 065
     Dates: start: 20240323, end: 20240816
  64. OMEPRAZOLE [Concomitant]
     Active Substance: OMEPRAZOLE
     Indication: Gastrooesophageal reflux prophylaxis
     Dosage: UNK (CAPSULE)
     Route: 065
     Dates: start: 20250206, end: 20250424
  65. OralSeven [Concomitant]
     Indication: Prophylaxis
     Dosage: MOISTURISING MOUTHWASH
     Route: 065
     Dates: start: 20240301, end: 20240517
  66. ACETAMINOPHEN [Concomitant]
     Active Substance: ACETAMINOPHEN
     Indication: Pain
     Dosage: UNK
     Route: 065
     Dates: start: 20240703, end: 20240703
  67. ACETAMINOPHEN [Concomitant]
     Active Substance: ACETAMINOPHEN
     Indication: Prophylaxis
     Dosage: UNK
     Route: 065
     Dates: start: 20240306, end: 20240601
  68. ACETAMINOPHEN [Concomitant]
     Active Substance: ACETAMINOPHEN
     Indication: Pyrexia
     Dosage: UNK (TABLET)
     Route: 065
     Dates: start: 20241017, end: 20241019
  69. POTASSIUM CHLORIDE [Concomitant]
     Active Substance: POTASSIUM CHLORIDE
     Indication: Hypokalaemia
     Dosage: UNK, (PREMIXED IN WFI) 10MMOL/100ML INFUSION
     Route: 065
     Dates: start: 20250613, end: 20250613
  70. POTASSIUM CHLORIDE [Concomitant]
     Active Substance: POTASSIUM CHLORIDE
     Indication: Prophylaxis
  71. CODEINE PHOSPHATE\PROMETHAZINE HYDROCHLORIDE [Concomitant]
     Active Substance: CODEINE PHOSPHATE\PROMETHAZINE HYDROCHLORIDE
     Indication: Prophylaxis
     Dosage: PROMETHAZINE HCL 3.6MG/5ML, CODEINE PHOSPHATE9MG/5ML
     Route: 065
     Dates: start: 20240422, end: 20240506
  72. CODEINE PHOSPHATE\PROMETHAZINE HYDROCHLORIDE [Concomitant]
     Active Substance: CODEINE PHOSPHATE\PROMETHAZINE HYDROCHLORIDE
     Indication: Upper respiratory tract infection
     Dosage: PROMETHAZINE HCL 3.6MG/5ML, CODEINE PHOSPHATE9MG/5ML
     Route: 065
     Dates: start: 20240403, end: 20240416
  73. PROGESTERONE [Concomitant]
     Active Substance: PROGESTERONE
     Indication: Premature menopause
     Dosage: UNK (CAPSULE)
     Route: 065
     Dates: start: 20250204, end: 20250215
  74. Progut [Concomitant]
     Indication: Prophylaxis
     Dosage: UNK
     Route: 065
     Dates: start: 20241220
  75. REMDESIVIR [Concomitant]
     Active Substance: REMDESIVIR
     Indication: Pyrexia
     Dosage: SODIUM CHLORIDE 0.9% 100 ML INFUSION
     Route: 065
     Dates: start: 20240716, end: 20240716
  76. SAXENDA [Concomitant]
     Active Substance: LIRAGLUTIDE
     Indication: Weight control
     Dosage: 18MG/3ML (PREFILLED PEN)
     Route: 065
     Dates: start: 20250206, end: 20250212
  77. SENNA [Concomitant]
     Active Substance: SENNOSIDES
     Indication: Constipation prophylaxis
     Dosage: UNK
     Route: 065
     Dates: start: 20240201
  78. SIMVASTATIN [Concomitant]
     Active Substance: SIMVASTATIN
     Indication: Hyperlipidaemia
     Dosage: UNK (TABLET)
     Route: 065
     Dates: start: 20220929, end: 20250227
  79. SODIUM LACTATE [Concomitant]
     Active Substance: SODIUM LACTATE
     Indication: Supplementation therapy
     Dosage: UNK
     Route: 065
     Dates: start: 20240716, end: 20240716
  80. Tears natural free [Concomitant]
     Indication: Prophylaxis
     Dosage: UNK
     Route: 065
     Dates: start: 20241227, end: 20250227
  81. TOUJEO [Concomitant]
     Active Substance: INSULIN GLARGINE
     Indication: Diabetes mellitus
     Dosage: SOLOSTAR PEN
     Route: 065
     Dates: start: 20250206, end: 20250728
  82. TRANEXAMIC ACID [Concomitant]
     Active Substance: TRANEXAMIC ACID
     Indication: Prophylaxis
     Dosage: TABLET
     Route: 065
     Dates: start: 20240627, end: 20240704
  83. VICTOZA [Concomitant]
     Active Substance: LIRAGLUTIDE
     Indication: Diabetes mellitus
     Dosage: PREFILLED PEN
     Route: 065
     Dates: start: 20230608

REACTIONS (3)
  - COVID-19 pneumonia [Recovered/Resolved]
  - Upper respiratory tract infection [Recovering/Resolving]
  - Pyrexia [Recovered/Resolved]

NARRATIVE: CASE EVENT DATE: 20240417
